FAERS Safety Report 8180829 (Version 11)
Quarter: 2017Q3

REPORT INFORMATION
  Report Type: Spontaneous
  Country: GB (occurrence: GB)
  Receive Date: 20111014
  Receipt Date: 20170726
  Transmission Date: 20171128
  Serious: Yes (Other)
  Sender: FDA-Public Use
  Company Number: GB-PFIZER INC-2011161648

PATIENT
  Age: 61 Year
  Sex: Female

DRUGS (18)
  1. TILDIEM [Suspect]
     Active Substance: DILTIAZEM HYDROCHLORIDE
     Indication: PRODUCT USED FOR UNKNOWN INDICATION
     Dosage: 200 MG, DAILY
     Route: 048
     Dates: start: 20101006, end: 20101104
  2. LOSARTAN. [Concomitant]
     Active Substance: LOSARTAN
     Indication: PRODUCT USED FOR UNKNOWN INDICATION
     Dosage: 25MG HALF A TABLET DAILY
     Route: 065
     Dates: start: 20101216
  3. SIMVASTATIN. [Concomitant]
     Active Substance: SIMVASTATIN
     Indication: PRODUCT USED FOR UNKNOWN INDICATION
     Dosage: 40 MG, UNK
     Route: 065
     Dates: start: 20100913
  4. DILTIAZEM HCL [Suspect]
     Active Substance: DILTIAZEM HYDROCHLORIDE
     Indication: PRODUCT USED FOR UNKNOWN INDICATION
     Dosage: 200MG DAILY
     Route: 048
     Dates: start: 20101006, end: 20101104
  5. SOTALOL. [Concomitant]
     Active Substance: SOTALOL
     Indication: PRODUCT USED FOR UNKNOWN INDICATION
     Dosage: 40 MG, 2X/DAY
     Route: 065
  6. CHAPARRAL DANDELION BLEND [Concomitant]
     Active Substance: HERBALS
     Indication: MIGRAINE
     Dosage: UNK
     Route: 065
  7. TRITACE [Suspect]
     Active Substance: RAMIPRIL
     Dosage: 2.5MG, DAILY
     Route: 048
     Dates: start: 20101206, end: 20101216
  8. ASPIRIN. [Concomitant]
     Active Substance: ASPIRIN
     Indication: PRODUCT USED FOR UNKNOWN INDICATION
     Dosage: 75MG ONCE DAILY
     Route: 065
     Dates: start: 20101202
  9. DANDELION [Concomitant]
     Active Substance: TARAXACUM OFFICINALE POLLEN
     Indication: POLYURIA
     Dosage: UNK
     Route: 065
  10. TRITACE [Suspect]
     Active Substance: RAMIPRIL
     Indication: BLOOD PRESSURE MEASUREMENT
     Dosage: 0.75 MG, DAILY
     Route: 048
     Dates: start: 20101118
  11. SIMVASTATIN. [Concomitant]
     Active Substance: SIMVASTATIN
     Dosage: 20MG,UNK
     Dates: start: 20101101
  12. BISOPROLOL FUMARATE. [Suspect]
     Active Substance: BISOPROLOL FUMARATE
     Indication: PRODUCT USED FOR UNKNOWN INDICATION
     Dosage: UNK
     Dates: start: 20101001, end: 20101006
  13. TILDIEM [Suspect]
     Active Substance: DILTIAZEM HYDROCHLORIDE
     Dosage: UNK
     Dates: start: 20110106
  14. BENDROFLUMETHIAZIDE [Concomitant]
     Active Substance: BENDROFLUMETHIAZIDE
     Indication: PRODUCT USED FOR UNKNOWN INDICATION
     Dosage: UNK
     Route: 065
     Dates: start: 20110113
  15. INDAPAMIDE. [Concomitant]
     Active Substance: INDAPAMIDE
     Indication: PRODUCT USED FOR UNKNOWN INDICATION
     Dosage: 1.5 MG, UNK
     Route: 065
     Dates: start: 20101001
  16. TARAXACUM [Concomitant]
     Indication: POLYURIA
     Dosage: UNK
     Route: 065
  17. INDAPAMIDE. [Concomitant]
     Active Substance: INDAPAMIDE
     Dosage: 2.5MG,UNK
  18. MEBEVERINE [Concomitant]
     Active Substance: MEBEVERINE
     Indication: PRODUCT USED FOR UNKNOWN INDICATION
     Dosage: 135 MG, 2X/DAY
     Route: 065

REACTIONS (8)
  - Nausea [Unknown]
  - Blood pressure increased [Unknown]
  - Drug hypersensitivity [Not Recovered/Not Resolved]
  - Hypoaesthesia [Recovered/Resolved]
  - Vertigo [Not Recovered/Not Resolved]
  - Vision blurred [Unknown]
  - Visual impairment [Unknown]
  - Dizziness [Not Recovered/Not Resolved]

NARRATIVE: CASE EVENT DATE: 20101101
